FAERS Safety Report 5547271-6 (Version None)
Quarter: 2007Q4

REPORT INFORMATION
  Report Type: 
  Country: None (occurrence: None)
  Receive Date: 20071211
  Receipt Date: 20071129
  Transmission Date: 20080405
  Serious: Yes (Other)
  Sender: FDA-Public Use
  Company Number: US-PFIZER INC-2007101113

PATIENT
  Sex: Female
  Weight: 64.09 kg

DRUGS (7)
  1. LYRICA [Suspect]
     Indication: PAIN IN EXTREMITY
     Dates: start: 20071128, end: 20071129
  2. LYRICA [Suspect]
     Indication: FIBROMYALGIA
  3. SYNTHROID [Concomitant]
  4. PROTONIX [Concomitant]
  5. AMBIEN [Concomitant]
  6. TRAZODONE HCL [Concomitant]
  7. CELEBREX [Concomitant]

REACTIONS (7)
  - CONFUSIONAL STATE [None]
  - DYSSTASIA [None]
  - FATIGUE [None]
  - FEELING ABNORMAL [None]
  - HEARING IMPAIRED [None]
  - HYPOAESTHESIA [None]
  - PAIN [None]
